FAERS Safety Report 9928373 (Version 2)
Quarter: 2014Q1

REPORT INFORMATION
  Report Type: Spontaneous
  Country: PE (occurrence: PE)
  Receive Date: 20140227
  Receipt Date: 20140311
  Transmission Date: 20141002
  Serious: Yes (Death, Other)
  Sender: FDA-Public Use
  Company Number: PE-PFIZER INC-2014052803

PATIENT
  Age: 84 Year
  Sex: Male

DRUGS (1)
  1. XALATAN [Suspect]
     Indication: GLAUCOMA
     Dosage: 1 DROP IN THE RIGHT EYE, ONCE A DAY AT NIGHT
     Route: 047
     Dates: start: 2008, end: 20140110

REACTIONS (4)
  - Metastases to liver [Fatal]
  - Neoplasm malignant [Unknown]
  - Dementia Alzheimer^s type [Not Recovered/Not Resolved]
  - General physical health deterioration [Not Recovered/Not Resolved]
